FAERS Safety Report 5011466-0 (Version None)
Quarter: 2006Q2

REPORT INFORMATION
  Report Type: 
  Country: None (occurrence: None)
  Receive Date: 20060525
  Receipt Date: 20060515
  Transmission Date: 20061013
  Serious: Yes (Hospitalization, Disabling)
  Sender: FDA-Public Use
  Company Number: US-MERCK-0605USA02720

PATIENT
  Age: 80 Year
  Sex: Male

DRUGS (5)
  1. FOSAMAX [Suspect]
     Indication: RESORPTION BONE INCREASED
     Route: 048
     Dates: start: 20060101, end: 20060515
  2. ZESTRIL [Concomitant]
     Route: 065
  3. ACIPHEX [Concomitant]
     Route: 065
  4. ASPIRIN [Concomitant]
     Route: 065
  5. GASTROINTESTINAL PREPARATIONS (UNSPECIFIED) [Concomitant]
     Route: 065

REACTIONS (2)
  - ABDOMINAL PAIN UPPER [None]
  - NEPHROLITHIASIS [None]
